FAERS Safety Report 18766675 (Version 3)
Quarter: 2021Q1

REPORT INFORMATION
  Report Type: Spontaneous
  Country: US (occurrence: US)
  Receive Date: 20210121
  Receipt Date: 20210310
  Transmission Date: 20210419
  Serious: Yes (Other)
  Sender: FDA-Public Use
  Company Number: US-SA-2021SA015961

PATIENT
  Sex: Male

DRUGS (3)
  1. AMOXICILLIN. [Suspect]
     Active Substance: AMOXICILLIN
     Indication: ADENOIDITIS
     Dosage: 500MG
  2. DUPIXENT [Suspect]
     Active Substance: DUPILUMAB
     Route: 058
  3. DUPIXENT [Suspect]
     Active Substance: DUPILUMAB
     Indication: DERMATITIS ATOPIC
     Route: 058

REACTIONS (8)
  - Tooth disorder [Unknown]
  - Tooth infection [Recovered/Resolved]
  - Peripheral vascular disorder [Unknown]
  - Arthralgia [Unknown]
  - Transient ischaemic attack [Unknown]
  - Adenoiditis [Recovered/Resolved]
  - Hypersensitivity [Unknown]
  - Toothache [Unknown]

NARRATIVE: CASE EVENT DATE: 2020
